FAERS Safety Report 8762265 (Version 1)
Quarter: 2012Q4

REPORT INFORMATION
  Report Type: 
  Country: US (occurrence: US)
  Receive Date: 20120830
  Receipt Date: 20120830
  Transmission Date: 20130627
  Serious: Yes (Other)
  Sender: FDA-Public Use
  Company Number: US-PFIZER INC-2012211832

PATIENT
  Age: 52 Year
  Sex: Male
  Weight: 96.6 kg

DRUGS (2)
  1. PRISTIQ [Suspect]
     Indication: DEPRESSION
     Dosage: UNK
     Dates: start: 2008
  2. GEODON [Concomitant]
     Indication: SCHIZOAFFECTIVE DISORDER
     Dosage: UNK

REACTIONS (9)
  - Brain injury [Unknown]
  - Headache [Unknown]
  - Chest discomfort [Unknown]
  - Swelling [Unknown]
  - Oropharyngeal pain [Unknown]
  - Throat tightness [Unknown]
  - Abdominal discomfort [Unknown]
  - Pulse abnormal [Unknown]
  - Dysphemia [Unknown]
